FAERS Safety Report 14838832 (Version 3)
Quarter: 2019Q1

REPORT INFORMATION
  Report Type: Report from Study
  Country: DE (occurrence: DE)
  Receive Date: 20180502
  Receipt Date: 20190116
  Transmission Date: 20190417
  Serious: Yes (Hospitalization, Other)
  Sender: FDA-Public Use
  Company Number: PHHY2018DE076464

PATIENT
  Age: 1 Year
  Sex: Male
  Weight: 10.2 kg

DRUGS (3)
  1. OMNITROPE [Suspect]
     Active Substance: SOMATROPIN
     Indication: PRADER-WILLI SYNDROME
     Dosage: 0.35 MG, QD
     Route: 058
     Dates: start: 20131112, end: 20131217
  2. OMNITROPE [Suspect]
     Active Substance: SOMATROPIN
     Dosage: 0.35 MG, QD
     Route: 058
     Dates: start: 20140123
  3. OMNITROPE [Suspect]
     Active Substance: SOMATROPIN
     Dosage: 0.25 MG, UNK
     Route: 058
     Dates: start: 20140702

REACTIONS (6)
  - Sleep apnoea syndrome [Recovered/Resolved]
  - Snoring [Recovering/Resolving]
  - Respiratory tract infection [Recovered/Resolved]
  - Sleep apnoea syndrome [Recovering/Resolving]
  - Apnoea [Recovering/Resolving]
  - Oxygen saturation decreased [Recovering/Resolving]

NARRATIVE: CASE EVENT DATE: 20131217
